FAERS Safety Report 8299718-2 (Version None)
Quarter: 2012Q2

REPORT INFORMATION
  Report Type: 
  Country: None (occurrence: None)
  Receive Date: 20120419
  Receipt Date: 20120418
  Transmission Date: 20120825
  Serious: No
  Sender: FDA-Public Use
  Company Number: US-B.I. PHARMACEUTICALS,INC./RIDGEFIELD-2011-BP-04501BP

PATIENT
  Sex: Female

DRUGS (16)
  1. SYNTHROID [Concomitant]
     Indication: HYPOTHYROIDISM
     Dosage: 150 MCG
     Route: 048
  2. PRADAXA [Suspect]
     Indication: CEREBROVASCULAR ACCIDENT PROPHYLAXIS
  3. PROPAFENONE HCL [Concomitant]
     Indication: ATRIAL FIBRILLATION
     Dosage: 450 MG
  4. ATIVAN [Concomitant]
  5. CELEXA [Concomitant]
     Indication: DEPRESSION
     Dosage: 20 MG
     Route: 048
  6. PRILOSEC [Concomitant]
  7. CITALOPRAM [Concomitant]
  8. DILTIAZEM HCL [Concomitant]
  9. LORAZEPAM [Concomitant]
     Indication: ANXIETY
     Route: 048
  10. PRADAXA [Suspect]
     Indication: ATRIAL FIBRILLATION
     Dosage: 300 MG
     Route: 048
     Dates: start: 20110101
  11. INDERAL [Concomitant]
     Indication: HYPERTENSION
     Dosage: 160 MG
     Route: 048
  12. CALCIUM CARBONATE [Concomitant]
  13. PROPRANOLOL [Concomitant]
  14. NEXIUM [Concomitant]
     Indication: GASTROOESOPHAGEAL REFLUX DISEASE
     Dosage: 40 MG
     Route: 048
  15. CALCIUM CARBONATE [Concomitant]
     Indication: SUPPLEMENTATION THERAPY
     Route: 048
  16. WELCHOL [Concomitant]
     Indication: BLOOD CHOLESTEROL INCREASED
     Route: 048

REACTIONS (2)
  - SPIDER VEIN [None]
  - HEADACHE [None]
